FAERS Safety Report 5492095-1 (Version None)
Quarter: 2007Q4

REPORT INFORMATION
  Report Type: 
  Country: None (occurrence: None)
  Receive Date: 20071022
  Receipt Date: 20071016
  Transmission Date: 20080405
  Serious: Yes (Death)
  Sender: FDA-Public Use
  Company Number: RU-MERCK-0710RUS00007

PATIENT
  Age: 50 Year
  Sex: Male

DRUGS (12)
  1. ZOCOR [Suspect]
     Indication: MYOCARDIAL ISCHAEMIA
     Route: 048
  2. ZOCOR [Suspect]
     Indication: ANGINA PECTORIS
     Route: 048
  3. BISOPROLOL [Concomitant]
     Indication: MYOCARDIAL ISCHAEMIA
     Route: 048
     Dates: start: 20070803
  4. BISOPROLOL [Concomitant]
     Indication: ANGINA PECTORIS
     Route: 048
     Dates: start: 20070803
  5. FOSINOPRIL SODIUM [Concomitant]
     Indication: MYOCARDIAL ISCHAEMIA
     Route: 048
     Dates: start: 20070803
  6. FOSINOPRIL SODIUM [Concomitant]
     Indication: ANGINA PECTORIS
     Route: 048
     Dates: start: 20070803
  7. ASPIRIN [Concomitant]
     Indication: MYOCARDIAL ISCHAEMIA
     Route: 048
  8. ASPIRIN [Concomitant]
     Indication: ANGINA PECTORIS
     Route: 048
  9. DIPYRIDAMOLE [Concomitant]
     Indication: MYOCARDIAL ISCHAEMIA
     Route: 048
  10. DIPYRIDAMOLE [Concomitant]
     Indication: ANGINA PECTORIS
     Route: 048
  11. METFORMIN [Concomitant]
     Indication: DIABETES MELLITUS
     Route: 048
  12. GLICLAZIDE [Concomitant]
     Indication: DIABETES MELLITUS
     Route: 048

REACTIONS (1)
  - CARDIAC FAILURE CONGESTIVE [None]
